FAERS Safety Report 14032798 (Version 1)
Quarter: 2017Q4

REPORT INFORMATION
  Report Type: Spontaneous
  Country: IE (occurrence: IE)
  Receive Date: 20171003
  Receipt Date: 20171003
  Transmission Date: 20180321
  Serious: Yes (Hospitalization)
  Sender: FDA-Public Use
  Company Number: IE-JNJFOC-20150205237

PATIENT
  Sex: Female
  Weight: 50 kg

DRUGS (2)
  1. REMICADE [Suspect]
     Active Substance: INFLIXIMAB
     Indication: COLITIS ULCERATIVE
     Route: 042
     Dates: start: 20091218, end: 20140911
  2. PREDNISONE. [Suspect]
     Active Substance: PREDNISONE
     Indication: PRODUCT USED FOR UNKNOWN INDICATION
     Route: 065

REACTIONS (11)
  - Pruritus [Recovered/Resolved]
  - Type IV hypersensitivity reaction [Unknown]
  - Condition aggravated [Unknown]
  - Scratch [Unknown]
  - Fatigue [Unknown]
  - Double stranded DNA antibody positive [Unknown]
  - Pulmonary fibrosis [Unknown]
  - Formication [Unknown]
  - Rash [Recovered/Resolved]
  - Somnolence [Unknown]
  - Antinuclear antibody positive [Unknown]

NARRATIVE: CASE EVENT DATE: 2014
